FAERS Safety Report 25510492 (Version 1)
Quarter: 2025Q3

REPORT INFORMATION
  Report Type: Spontaneous
  Country: US (occurrence: US)
  Receive Date: 20250703
  Receipt Date: 20250703
  Transmission Date: 20251020
  Serious: No
  Sender: NEUROCRINE BIOSCIENCES
  Company Number: US-NEUROCRINE BIOSCIENCES INC.-2025NBI08254

PATIENT
  Age: 72 Year
  Sex: Female

DRUGS (2)
  1. INGREZZA [Suspect]
     Active Substance: VALBENAZINE DITOSYLATE
     Indication: Tardive dyskinesia
     Route: 065
  2. INGREZZA [Suspect]
     Active Substance: VALBENAZINE DITOSYLATE
     Route: 065

REACTIONS (7)
  - Attention deficit hyperactivity disorder [Unknown]
  - Depression [Unknown]
  - Brain fog [Recovering/Resolving]
  - Bradyphrenia [Recovering/Resolving]
  - Feeling abnormal [Recovering/Resolving]
  - Sluggishness [Recovering/Resolving]
  - Sedation [Recovering/Resolving]
